FAERS Safety Report 19860988 (Version 1)
Quarter: 2021Q3

REPORT INFORMATION
  Report Type: Spontaneous
  Country: FR (occurrence: FR)
  Receive Date: 20210920
  Receipt Date: 20210920
  Transmission Date: 20211014
  Serious: Yes (Hospitalization, Other)
  Sender: FDA-Public Use
  Company Number: FR-MYLANLABS-2021M1063124

PATIENT
  Age: 17 Year
  Sex: Female

DRUGS (2)
  1. IBUPROFENE [Suspect]
     Active Substance: IBUPROFEN
     Indication: PRODUCT USED FOR UNKNOWN INDICATION
     Dosage: 8 GRAM, TOTAL
     Route: 048
     Dates: start: 20200826, end: 20200826
  2. PARACETAMOL [Suspect]
     Active Substance: ACETAMINOPHEN
     Indication: PRODUCT USED FOR UNKNOWN INDICATION
     Dosage: 7 GRAM, TOTAL
     Route: 048
     Dates: start: 20200826, end: 20200826

REACTIONS (4)
  - Hepatocellular injury [Recovered/Resolved]
  - Vomiting [Recovered/Resolved]
  - Suicide attempt [Unknown]
  - Toxicity to various agents [Recovered/Resolved]

NARRATIVE: CASE EVENT DATE: 20200826
